FAERS Safety Report 21022891 (Version 1)
Quarter: 2022Q2

REPORT INFORMATION
  Report Type: Spontaneous
  Country: US (occurrence: US)
  Receive Date: 20220629
  Receipt Date: 20220629
  Transmission Date: 20220721
  Serious: No
  Sender: FDA-Public Use
  Company Number: US-GSKCCFUS-Case-01413260_AE-81345

PATIENT
  Age: 64 Year
  Sex: Male

DRUGS (3)
  1. BREO ELLIPTA [Suspect]
     Active Substance: FLUTICASONE FUROATE\VILANTEROL TRIFENATATE
     Indication: Product used for unknown indication
     Dosage: UNK
  2. TRELEGY ELLIPTA [Suspect]
     Active Substance: FLUTICASONE FUROATE\UMECLIDINIUM BROMIDE\VILANTEROL TRIFENATATE
     Indication: Product used for unknown indication
     Dosage: UNK
  3. FASENRA [Concomitant]
     Active Substance: BENRALIZUMAB
     Indication: Asthma
     Dosage: UNK, Z (EVERY 8 WEEKS)

REACTIONS (7)
  - Palpitations [Unknown]
  - Candida infection [Unknown]
  - Dyspnoea [Unknown]
  - Adverse drug reaction [Unknown]
  - Drug ineffective [Unknown]
  - Expired product administered [Unknown]
  - Product dispensing error [Unknown]

NARRATIVE: CASE EVENT DATE: 20220601
